FAERS Safety Report 23908196 (Version 4)
Quarter: 2024Q3

REPORT INFORMATION
  Report Type: Spontaneous
  Country: US (occurrence: US)
  Receive Date: 20240528
  Receipt Date: 20240827
  Transmission Date: 20241016
  Serious: Yes (Other)
  Sender: PFIZER
  Company Number: US-PFIZER INC-202400178544

PATIENT
  Age: 50 Year
  Sex: Male

DRUGS (5)
  1. OXBRYTA [Suspect]
     Active Substance: VOXELOTOR
     Dosage: 500 MG TABLETS, 3 TABLETS, ONCE DAILY, ORALLY
     Route: 048
     Dates: start: 20240516
  2. OXBRYTA [Suspect]
     Active Substance: VOXELOTOR
     Dosage: 500 MG TABLETS, 3 TABLETS, ONCE DAILY, ORALLY
     Route: 048
     Dates: start: 20240516
  3. OXBRYTA [Suspect]
     Active Substance: VOXELOTOR
     Dosage: 500 MG, 3 TABLETS, ONCE DAILY
     Route: 048
     Dates: start: 20240523
  4. OXBRYTA [Suspect]
     Active Substance: VOXELOTOR
     Dosage: UNK
     Dates: end: 202408
  5. OMEPRAZOLE [Concomitant]
     Active Substance: OMEPRAZOLE
     Indication: Flatulence
     Dosage: UNK

REACTIONS (13)
  - Haemoglobin decreased [Recovering/Resolving]
  - Nausea [Unknown]
  - Salivary hypersecretion [Unknown]
  - Frequent bowel movements [Recovered/Resolved]
  - Abdominal distension [Unknown]
  - Abdominal pain upper [Unknown]
  - Diarrhoea [Unknown]
  - Asthenia [Unknown]
  - Somnolence [Unknown]
  - Feeling of relaxation [Unknown]
  - Dizziness [Unknown]
  - Thyroid function test abnormal [Unknown]
  - Peripheral swelling [Unknown]

NARRATIVE: CASE EVENT DATE: 20240101
